FAERS Safety Report 12474377 (Version 1)
Quarter: 2016Q2

REPORT INFORMATION
  Report Type: Spontaneous
  Country: US (occurrence: None)
  Receive Date: 20160616
  Receipt Date: 20160616
  Transmission Date: 20160815
  Serious: Yes (Hospitalization)
  Sender: FDA-Public Use
  Company Number: None

PATIENT
  Age: 66 Year
  Sex: Male
  Weight: 58.51 kg

DRUGS (6)
  1. CAPECITABINE. [Suspect]
     Active Substance: CAPECITABINE
     Indication: COLON CANCER
     Dosage: 1500MG BID D1-14 (Q21DAY
     Dates: start: 20160531, end: 20160613
  2. LASIX [Concomitant]
     Active Substance: FUROSEMIDE
  3. OXYCODONE [Concomitant]
     Active Substance: OXYCODONE
  4. ALDACTONE [Concomitant]
     Active Substance: SPIRONOLACTONE
  5. QUINACRINE [Suspect]
     Active Substance: QUINACRINE
     Indication: COLON CANCER
     Dates: start: 20160531, end: 20160613
  6. TRAVATAN [Concomitant]
     Active Substance: TRAVOPROST

REACTIONS (3)
  - Diarrhoea [None]
  - Vomiting [None]
  - Haematemesis [None]

NARRATIVE: CASE EVENT DATE: 20160613
